FAERS Safety Report 10744531 (Version 2)
Quarter: 2015Q1

REPORT INFORMATION
  Report Type: Spontaneous
  Country: US (occurrence: None)
  Receive Date: 20150126
  Receipt Date: 20150206
  Transmission Date: 20150721
  Serious: Yes (Other)
  Sender: FDA-Public Use
  Company Number: ADR-2015-00183

PATIENT
  Age: 22 Year
  Sex: Male

DRUGS (1)
  1. BACLOFEN. [Suspect]
     Active Substance: BACLOFEN
     Indication: PAIN

REACTIONS (2)
  - Lymphoedema [None]
  - Implant site oedema [None]

NARRATIVE: CASE EVENT DATE: 20150115
